FAERS Safety Report 8308360-6 (Version None)
Quarter: 2012Q2

REPORT INFORMATION
  Report Type: 
  Country: None (occurrence: None)
  Receive Date: 20120419
  Receipt Date: 20120409
  Transmission Date: 20120825
  Serious: Yes (Other)
  Sender: FDA-Public Use
  Company Number: 2012P1012711

PATIENT
  Age: 74 Year
  Sex: Female
  Weight: 60 kg

DRUGS (4)
  1. LIDOCAINE W/ EPINEPHRINE [Suspect]
     Indication: NERVE BLOCK
     Dosage: 300 MG, 80 MG
  2. STATIN [Concomitant]
  3. FLECAINIDE ACETATE [Suspect]
     Indication: ATRIAL FIBRILLATION
  4. ANGIOTENSIN-CONVERTING ENZYME INHIBITORS [Concomitant]

REACTIONS (4)
  - TOXICITY TO VARIOUS AGENTS [None]
  - DRUG INTERACTION [None]
  - ANAESTHETIC COMPLICATION [None]
  - MYOCLONUS [None]
